FAERS Safety Report 25278100 (Version 2)
Quarter: 2025Q4

REPORT INFORMATION
  Report Type: Report from Study
  Country: US (occurrence: US)
  Receive Date: 20250507
  Receipt Date: 20251114
  Transmission Date: 20260119
  Serious: Yes (Other)
  Sender: XERIS PHARMACEUTICALS
  Company Number: US-BRIAN CONNER SVP QUALITY AND CHIEF COMPLIANCE OFFICER-2025XER00298

PATIENT
  Sex: Female

DRUGS (8)
  1. RECORLEV [Suspect]
     Active Substance: LEVOKETOCONAZOLE
     Indication: Cushing^s syndrome
     Dosage: UNK
     Dates: start: 20241011
  2. RECORLEV [Suspect]
     Active Substance: LEVOKETOCONAZOLE
     Dosage: 300 MG, 1X/DAY IN THE AM
     Dates: start: 20250306, end: 2025
  3. RECORLEV [Suspect]
     Active Substance: LEVOKETOCONAZOLE
     Dosage: 150 MG, 1X/DAY IN THE PM
     Dates: start: 20250306, end: 2025
  4. RECORLEV [Suspect]
     Active Substance: LEVOKETOCONAZOLE
     Dosage: 450 MG, 1X/DAY IN THE MORNING
     Route: 048
     Dates: start: 20250823
  5. RECORLEV [Suspect]
     Active Substance: LEVOKETOCONAZOLE
     Dosage: 300 MG, 1X/DAY IN THE EVENING
     Route: 048
     Dates: start: 20250823
  6. BRILINTA [Suspect]
     Active Substance: TICAGRELOR
     Dosage: 2 TABLETS, 1X/DAY
  7. BRILINTA [Suspect]
     Active Substance: TICAGRELOR
     Dosage: 1 TABLETS, 1X/DAY
     Dates: start: 202504
  8. PROTONIX [Concomitant]
     Active Substance: PANTOPRAZOLE SODIUM

REACTIONS (4)
  - Neuropathy peripheral [Not Recovered/Not Resolved]
  - Oesophageal haemorrhage [Unknown]
  - Contusion [Not Recovered/Not Resolved]
  - Oedema [Not Recovered/Not Resolved]

NARRATIVE: CASE EVENT DATE: 20250101
